FAERS Safety Report 4936578-9 (Version None)
Quarter: 2006Q1

REPORT INFORMATION
  Report Type: 
  Country: None (occurrence: None)
  Receive Date: 20060302
  Receipt Date: 20060214
  Transmission Date: 20060701
  Serious: Yes (Death)
  Sender: FDA-Public Use
  Company Number: USA050392551

PATIENT
  Age: 71 Year
  Sex: Male
  Weight: 76.6 kg

DRUGS (10)
  1. STRATTERA [Suspect]
     Indication: ATTENTION DEFICIT/HYPERACTIVITY DISORDER
     Dosage: SEE IMAGE
     Dates: start: 20041220, end: 20041227
  2. STRATTERA [Suspect]
     Indication: ATTENTION DEFICIT/HYPERACTIVITY DISORDER
     Dosage: SEE IMAGE
     Dates: start: 20041228
  3. CIALIS [Suspect]
     Indication: ERECTILE DYSFUNCTION
  4. LIPITOR [Concomitant]
  5. ATENOLOL [Concomitant]
  6. IMDUR [Concomitant]
  7. PRILOSEC [Concomitant]
  8. ASA (ASPIRIN (ACETYLSALICYLIC ACID)) CAPSULE [Concomitant]
  9. LISINOPRIL [Concomitant]
  10. FLOMAX [Concomitant]

REACTIONS (3)
  - ACUTE MYOCARDIAL INFARCTION [None]
  - CARDIAC ARREST [None]
  - VENTRICULAR FIBRILLATION [None]
